FAERS Safety Report 7002336-7 (Version None)
Quarter: 2010Q3

REPORT INFORMATION
  Report Type: 
  Country: None (occurrence: None)
  Receive Date: 20100920
  Receipt Date: 20070524
  Transmission Date: 20110219
  Serious: Yes (Other)
  Sender: FDA-Public Use
  Company Number: US-ASTRAZENECA-2006UW11431

PATIENT
  Sex: Female
  Weight: 133.4 kg

DRUGS (9)
  1. SEROQUEL [Suspect]
     Dosage: 25-100 MG DAILY
     Route: 048
     Dates: start: 20030815
  2. SEROQUEL [Suspect]
     Route: 048
     Dates: start: 20060101, end: 20060101
  3. BUSPAR [Concomitant]
     Dosage: 15-30 MG DAILY
     Route: 048
     Dates: start: 20001025
  4. PLAVIX [Concomitant]
     Route: 048
     Dates: start: 19980911
  5. LIPITOR [Concomitant]
     Route: 048
     Dates: start: 19980911
  6. PAXIL [Concomitant]
     Route: 048
     Dates: start: 19980401
  7. MAVIK [Concomitant]
     Route: 048
     Dates: start: 20030815
  8. VIOXX [Concomitant]
     Dosage: 25 DAILY
     Route: 048
     Dates: start: 20030815
  9. FELODIPINE [Concomitant]
     Route: 048
     Dates: start: 20030815

REACTIONS (3)
  - DIABETES MELLITUS [None]
  - DIABETIC COMA [None]
  - DIABETIC KETOACIDOSIS [None]
